FAERS Safety Report 5299973-7 (Version None)
Quarter: 2007Q2

REPORT INFORMATION
  Report Type: 
  Country: None (occurrence: None)
  Receive Date: 20070417
  Receipt Date: 20070405
  Transmission Date: 20071010
  Serious: Yes (Hospitalization)
  Sender: FDA-Public Use
  Company Number: HQWYE616205MAR07

PATIENT
  Sex: Female
  Weight: 47 kg

DRUGS (9)
  1. ENBREL [Suspect]
     Indication: RHEUMATOID ARTHRITIS
     Route: 058
     Dates: start: 20060804, end: 20070216
  2. PREDONINE [Concomitant]
     Indication: RHEUMATOID ARTHRITIS
     Dates: start: 20060810
  3. LOXONIN [Concomitant]
     Indication: RHEUMATOID ARTHRITIS
     Route: 048
     Dates: start: 20050413, end: 20070216
  4. ALESION [Concomitant]
     Indication: ECZEMA
     Route: 048
     Dates: start: 20060822
  5. ALFACALCIDOL [Concomitant]
     Indication: OSTEOPOROSIS
  6. MUCOSERUM [Concomitant]
     Indication: BRONCHIECTASIS
     Route: 048
     Dates: start: 20060816
  7. CLARITHROMYCIN [Concomitant]
     Indication: BRONCHIECTASIS
     Route: 048
     Dates: start: 20060315, end: 20070216
  8. METHOTREXATE [Concomitant]
     Indication: RHEUMATOID ARTHRITIS
     Dosage: UNSPECIFIED
     Route: 048
     Dates: start: 20060707, end: 20060811
  9. TAKEPRON [Concomitant]
     Indication: GASTRIC ULCER
     Route: 048
     Dates: start: 20070119

REACTIONS (1)
  - ARTHRITIS BACTERIAL [None]
